FAERS Safety Report 9291066 (Version 2)
Quarter: 2013Q2

REPORT INFORMATION
  Report Type: Spontaneous
  Country: CN (occurrence: CN)
  Receive Date: 20130515
  Receipt Date: 20130517
  Transmission Date: 20140414
  Serious: Yes (Hospitalization)
  Sender: FDA-Public Use
  Company Number: CN-PFIZER INC-2013147477

PATIENT
  Age: 56 Year
  Sex: Male
  Weight: 95 kg

DRUGS (3)
  1. NORVASC [Suspect]
     Indication: ESSENTIAL HYPERTENSION
     Dosage: 10 MG, 1X/DAY
     Route: 048
     Dates: start: 20120401, end: 20120407
  2. CARDURA [Suspect]
     Indication: ESSENTIAL HYPERTENSION
     Dosage: UNK
     Dates: start: 20120401, end: 20120407
  3. MICARDIS [Suspect]
     Indication: ESSENTIAL HYPERTENSION
     Dosage: UNK
     Dates: start: 20120401, end: 20120406

REACTIONS (2)
  - Hypersensitivity [Recovering/Resolving]
  - Dermatitis exfoliative [Recovering/Resolving]
